FAERS Safety Report 12827027 (Version 1)
Quarter: 2016Q4

REPORT INFORMATION
  Report Type: Spontaneous
  Country: US (occurrence: US)
  Receive Date: 20161006
  Receipt Date: 20161006
  Transmission Date: 20170207
  Serious: No
  Sender: FDA-Public Use
  Company Number: US-009507513-1609USA014052

PATIENT
  Age: 20 Year
  Sex: Female
  Weight: 58 kg

DRUGS (1)
  1. NEXPLANON [Suspect]
     Active Substance: ETONOGESTREL
     Indication: CONTRACEPTION
     Dosage: 1 IMPLANT IN THE PATIENT^S LEFT ARM
     Route: 059
     Dates: start: 20160606

REACTIONS (2)
  - Menstruation delayed [Unknown]
  - Hypomenorrhoea [Recovered/Resolved]

NARRATIVE: CASE EVENT DATE: 201607
